FAERS Safety Report 7324886-6 (Version None)
Quarter: 2011Q1

REPORT INFORMATION
  Report Type: 
  Country: None (occurrence: None)
  Receive Date: 20110301
  Receipt Date: 20110228
  Transmission Date: 20110831
  Serious: Yes (Hospitalization)
  Sender: FDA-Public Use
  Company Number: JP-ABBOTT-11P-087-0703637-00

PATIENT
  Sex: Female
  Weight: 43 kg

DRUGS (7)
  1. LACTOBACILLUS CASEI [Concomitant]
     Indication: PROPHYLAXIS
     Dates: end: 20110203
  2. HUMIRA [Suspect]
     Route: 058
     Dates: start: 20110131, end: 20110131
  3. FERROUS CITRATE [Concomitant]
     Indication: PROPHYLAXIS
     Dates: end: 20110203
  4. HUMIRA [Suspect]
     Indication: CROHN'S DISEASE
     Route: 058
     Dates: start: 20110117, end: 20110117
  5. HUMIRA [Suspect]
     Route: 058
     Dates: end: 20110131
  6. AZATHIOPRINE SODIUM [Concomitant]
     Indication: CROHN'S DISEASE
     Route: 048
     Dates: end: 20110203
  7. MESALAZINE [Concomitant]
     Indication: CROHN'S DISEASE
     Route: 048
     Dates: end: 20110203

REACTIONS (5)
  - PYREXIA [None]
  - ABDOMINAL PAIN [None]
  - SUBILEUS [None]
  - VOMITING [None]
  - PANCREATITIS ACUTE [None]
